FAERS Safety Report 7198023 (Version 2)
Quarter: 2020Q3

REPORT INFORMATION
  Report Type: Report from Study
  Country: DE (occurrence: DE)
  Receive Date: 20091203
  Receipt Date: 20100914
  Transmission Date: 20201105
  Serious: Yes (Death)
  Sender: FDA-Public Use
  Company Number: DE-ROCHE-671450

PATIENT
  Age: 47 Year
  Sex: Female
  Weight: 69 kg

DRUGS (14)
  1. CAPECITABINE. [Suspect]
     Active Substance: CAPECITABINE
     Route: 065
     Dates: start: 20081008, end: 20081022
  2. CAELYX [Concomitant]
     Active Substance: DOXORUBICIN HYDROCHLORIDE
     Dosage: THE PATIENT RECEIVED 3 TIMES CAELYX CHEMOTHERAPY.
  3. TAMOXIFEN CITRATE. [Concomitant]
     Active Substance: TAMOXIFEN CITRATE
  4. FASLODEX [Concomitant]
     Active Substance: FULVESTRANT
  5. CAPECITABINE. [Suspect]
     Active Substance: CAPECITABINE
     Route: 065
     Dates: start: 20080917, end: 20081001
  6. CAPECITABINE. [Suspect]
     Active Substance: CAPECITABINE
     Route: 065
     Dates: start: 20081119, end: 20081203
  7. CAPECITABINE. [Suspect]
     Active Substance: CAPECITABINE
     Route: 065
     Dates: start: 20081210, end: 20081224
  8. CAPECITABINE. [Suspect]
     Active Substance: CAPECITABINE
     Route: 065
     Dates: start: 20081029, end: 20081112
  9. AVASTIN [Suspect]
     Active Substance: BEVACIZUMAB
     Route: 065
     Dates: end: 200905
  10. IBANDRONIC ACID. [Suspect]
     Active Substance: IBANDRONIC ACID
     Route: 065
     Dates: end: 200905
  11. TAXOL [Concomitant]
     Active Substance: PACLITAXEL
     Dates: end: 200905
  12. EPIRUBICIN [Concomitant]
     Active Substance: EPIRUBICIN
     Dosage: ADMINISTERED 4 TIMES DURING AN UNKNOWN PERIOD OF TIME.
  13. CAPECITABINE. [Suspect]
     Active Substance: CAPECITABINE
     Route: 065
     Dates: start: 20080826, end: 20080909
  14. GNRH [Concomitant]

REACTIONS (1)
  - Neoplasm malignant [Fatal]
